FAERS Safety Report 15012763 (Version 2)
Quarter: 2018Q3

REPORT INFORMATION
  Report Type: Spontaneous
  Country: JP (occurrence: JP)
  Receive Date: 20180614
  Receipt Date: 20180710
  Transmission Date: 20181010
  Serious: Yes (Other)
  Sender: FDA-Public Use
  Company Number: JP-SHIRE-JP201812715

PATIENT

DRUGS (4)
  1. INTUNIV [Suspect]
     Active Substance: GUANFACINE HYDROCHLORIDE
     Indication: ATTENTION DEFICIT/HYPERACTIVITY DISORDER
     Dosage: 1 MG, 1X/DAY:QD
     Route: 048
     Dates: start: 20180302, end: 20180311
  2. INTUNIV [Suspect]
     Active Substance: GUANFACINE HYDROCHLORIDE
     Dosage: 1 MG, 1X/DAY:QD
     Route: 065
     Dates: start: 20180404
  3. INCREMIN [Concomitant]
     Active Substance: FERRIC PYROPHOSPHATE
     Indication: IRON DEFICIENCY ANAEMIA
  4. INTUNIV [Suspect]
     Active Substance: GUANFACINE HYDROCHLORIDE
     Dosage: 2 MG, 1X/DAY:QD
     Route: 048
     Dates: start: 20180313, end: 20180325

REACTIONS (9)
  - Mood swings [Recovering/Resolving]
  - Listless [Unknown]
  - Affect lability [Unknown]
  - Blood pressure decreased [Recovered/Resolved]
  - Anger [Unknown]
  - Egocentrism [Recovering/Resolving]
  - Irritability [Recovering/Resolving]
  - Abulia [Unknown]
  - Decreased interest [Recovering/Resolving]

NARRATIVE: CASE EVENT DATE: 20180313
